FAERS Safety Report 5707286-1 (Version None)
Quarter: 2008Q2

REPORT INFORMATION
  Report Type: 
  Country: None (occurrence: None)
  Receive Date: 20080416
  Receipt Date: 20080403
  Transmission Date: 20081010
  Serious: Yes (Other)
  Sender: FDA-Public Use
  Company Number: PHBS2008AT03216

PATIENT
  Age: 42 Year
  Sex: Male
  Weight: 61 kg

DRUGS (4)
  1. SEBIVO [Suspect]
     Indication: HEPATITIS B
     Dosage: 600 MG, QW2
     Route: 048
     Dates: end: 20080229
  2. INDEROL [Concomitant]
     Dosage: 10 MG/DAY
     Route: 048
  3. ANAFRANIL [Concomitant]
     Dosage: 40 MG/DAY
     Route: 048
  4. LASIX [Concomitant]
     Dosage: 80 MG/DAY
     Route: 048

REACTIONS (2)
  - DISTURBANCE IN ATTENTION [None]
  - SOMNOLENCE [None]
